FAERS Safety Report 15991586 (Version 1)
Quarter: 2019Q1

REPORT INFORMATION
  Report Type: Spontaneous
  Country: NL (occurrence: NL)
  Receive Date: 20190221
  Receipt Date: 20190221
  Transmission Date: 20190418
  Serious: Yes (Other)
  Sender: FDA-Public Use
  Company Number: NL-MYLANLABS-2019M1015773

PATIENT
  Age: 85 Year
  Sex: Male

DRUGS (1)
  1. RAMIPRIL. [Suspect]
     Active Substance: RAMIPRIL
     Indication: PRODUCT USED FOR UNKNOWN INDICATION
     Dosage: 5 MG, UNK
     Route: 065
     Dates: start: 201709, end: 20180723

REACTIONS (10)
  - Oral discomfort [Recovering/Resolving]
  - Mouth swelling [Recovering/Resolving]
  - Drooling [Recovering/Resolving]
  - Feeling abnormal [Recovering/Resolving]
  - Drug hypersensitivity [Recovering/Resolving]
  - Malaise [Recovering/Resolving]
  - Dysarthria [Recovering/Resolving]
  - Erythema [Recovering/Resolving]
  - Sneezing [Recovering/Resolving]
  - Lacrimation increased [Recovering/Resolving]

NARRATIVE: CASE EVENT DATE: 20180720
